FAERS Safety Report 20224074 (Version 2)
Quarter: 2022Q1

REPORT INFORMATION
  Report Type: Spontaneous
  Country: US (occurrence: US)
  Receive Date: 20211223
  Receipt Date: 20220113
  Transmission Date: 20220423
  Serious: Yes (Life-Threatening, Hospitalization)
  Sender: FDA-Public Use
  Company Number: US-TEVA-2021-US-1989626

PATIENT
  Age: 55 Year
  Sex: Male

DRUGS (48)
  1. CLONIDINE [Suspect]
     Active Substance: CLONIDINE
     Indication: Cancer pain
     Dosage: .3 MILLIGRAM DAILY;
     Route: 065
  2. CLONIDINE [Suspect]
     Active Substance: CLONIDINE
     Dosage: .6 MILLIGRAM DAILY;
     Route: 065
  3. CLONIDINE [Suspect]
     Active Substance: CLONIDINE
     Dosage: .9 MILLIGRAM DAILY;
     Route: 065
  4. DIAZEPAM [Suspect]
     Active Substance: DIAZEPAM
     Indication: Anxiety
     Dosage: 30 MILLIGRAM DAILY; ON DAY 6 AND DAY 7
     Route: 048
  5. DIAZEPAM [Suspect]
     Active Substance: DIAZEPAM
     Dosage: 40 MILLIGRAM DAILY; ON DAY 10, 11 AND 13
     Route: 048
  6. DIAZEPAM [Suspect]
     Active Substance: DIAZEPAM
     Dosage: 60 MILLIGRAM DAILY; ON DAY 16 AND DAY 17
     Route: 048
  7. DIAZEPAM [Suspect]
     Active Substance: DIAZEPAM
     Dosage: 20 MILLIGRAM DAILY; PRN DOSE FROM DAY 6-DAY 13
     Route: 048
  8. DIAZEPAM [Suspect]
     Active Substance: DIAZEPAM
     Dosage: PRN DOSE ON DAY 16-17
     Route: 048
  9. HYDROMORPHONE [Suspect]
     Active Substance: HYDROMORPHONE
     Indication: Cancer pain
     Dosage: 72 MILLIGRAM DAILY; PCA ON DAY 2
     Route: 042
  10. HYDROMORPHONE [Suspect]
     Active Substance: HYDROMORPHONE
     Dosage: 6 MILLIGRAM DAILY; RESCUE DOSE ON DAY 2 (5 DOSES)
     Route: 042
  11. HYDROMORPHONE [Suspect]
     Active Substance: HYDROMORPHONE
     Dosage: 100.8 MILLIGRAM DAILY; PCA ON DAY 3
     Route: 042
  12. HYDROMORPHONE [Suspect]
     Active Substance: HYDROMORPHONE
     Dosage: 9 MILLIGRAM DAILY; RESCUE DOSE ON DAY 3 (5 DOSES)
     Route: 042
  13. HYDROMORPHONE [Suspect]
     Active Substance: HYDROMORPHONE
     Dosage: 12 MILLIGRAM DAILY; PCA ON DAY 5, DAY 6 AND DAY 7
     Route: 041
  14. HYDROMORPHONE [Suspect]
     Active Substance: HYDROMORPHONE
     Dosage: 144 MILLIGRAM DAILY; DEMAND DOSE ON DAY 5, DAY 6 AND DAY 7
     Route: 041
  15. HYDROMORPHONE [Suspect]
     Active Substance: HYDROMORPHONE
     Dosage: 2MG RESCUE DOSE ON DAY 5, DAY 6 AND DAY 7 (3 DOSES)
     Route: 042
  16. MORPHINE [Suspect]
     Active Substance: MORPHINE
     Indication: Cancer pain
     Route: 065
  17. MORPHINE [Suspect]
     Active Substance: MORPHINE
     Dosage: 291MG EQUIVALENT DOSE ON DAY 2
     Route: 048
  18. MORPHINE [Suspect]
     Active Substance: MORPHINE
     Dosage: 626MG EQUIVALENT DOSE ON DAY 3
     Route: 048
  19. MORPHINE [Suspect]
     Active Substance: MORPHINE
     Dosage: 812MG EQUIVALENT DOSE ON DAY 5
     Route: 048
  20. MORPHINE [Suspect]
     Active Substance: MORPHINE
     Dosage: 960MG EQUIVALENT DOSE ON DAY 6
     Route: 048
  21. MORPHINE [Suspect]
     Active Substance: MORPHINE
     Dosage: 1125MG EQUIVALENT DOSE ON DAY 7
     Route: 048
  22. MORPHINE [Suspect]
     Active Substance: MORPHINE
     Dosage: 720MG EQUIVALENT DOSE ON DAY 10
     Route: 048
  23. MORPHINE [Suspect]
     Active Substance: MORPHINE
     Dosage: 744MG EQUIVALENT DOSE ON DAY 11
     Route: 048
  24. MORPHINE [Suspect]
     Active Substance: MORPHINE
     Dosage: 1044MG EQUIVALENT DOSE ON DAY 13
     Route: 048
  25. MORPHINE [Suspect]
     Active Substance: MORPHINE
     Dosage: 790MG EQUIVALENT DOSE ON DAY 16
     Route: 048
  26. MORPHINE [Suspect]
     Active Substance: MORPHINE
     Dosage: 1131MG EQUIVALENT DOSE ON DAY 17
     Route: 048
  27. MORPHINE [Suspect]
     Active Substance: MORPHINE
     Dosage: 804MG EQUIVALENT DOSE ON DAY 18
     Route: 048
  28. MORPHINE [Suspect]
     Active Substance: MORPHINE
     Dosage: 726MG EQUIVALENT DOSE ON DAY 19
     Route: 048
  29. ACETAMINOPHEN\OXYCODONE HYDROCHLORIDE [Suspect]
     Active Substance: ACETAMINOPHEN\OXYCODONE HYDROCHLORIDE
     Indication: Cancer pain
     Route: 065
  30. TRAMADOL [Suspect]
     Active Substance: TRAMADOL
     Indication: Cancer pain
     Dosage: 100 MILLIGRAM DAILY; AT NIGHT, PRN DOSE
     Route: 065
  31. TRAZODONE [Suspect]
     Active Substance: TRAZODONE HYDROCHLORIDE
     Indication: Cancer pain
     Dosage: 50 MILLIGRAM DAILY; AT NIGHT ON DAY 2
     Route: 065
  32. TRAZODONE [Suspect]
     Active Substance: TRAZODONE HYDROCHLORIDE
     Dosage: 100 MILLIGRAM DAILY; NIGHTLY DOSE FROM DAY 3-DAY 17
     Route: 065
  33. METHADONE [Suspect]
     Active Substance: METHADONE HYDROCHLORIDE
     Indication: Drug use disorder
     Dosage: 250 MILLIGRAM DAILY; FOR OPIOID USE DISORDER
     Route: 065
     Dates: start: 2017
  34. METHADONE [Suspect]
     Active Substance: METHADONE HYDROCHLORIDE
     Indication: Cancer pain
     Dosage: FOR PAIN
     Route: 065
  35. OXYCONTIN [Suspect]
     Active Substance: OXYCODONE HYDROCHLORIDE
     Indication: Cancer pain
     Dosage: 180 MILLIGRAM DAILY; EXTENDED-RELEASE ON DAY 16 AND DAY 17
     Route: 048
  36. LORAZEPAM [Suspect]
     Active Substance: LORAZEPAM
     Indication: Agitation
     Dosage: 4 MILLIGRAM DAILY; TOTAL DOSE (5MG) FOR AGITATION ON DAY 2
     Route: 042
  37. LORAZEPAM [Suspect]
     Active Substance: LORAZEPAM
     Indication: Anxiety
     Dosage: 4 MILLIGRAM DAILY; TOTAL DOSE (3MG) FOR AGITATION ON DAY 3 AND 5
     Route: 042
  38. LORAZEPAM [Suspect]
     Active Substance: LORAZEPAM
     Dosage: 6 MILLIGRAM DAILY; FOR ANXIETY (TOTAL 6MG ON DAY 17 AND 6MG ON DAY 18)
     Route: 042
  39. LIDOCAINE [Suspect]
     Active Substance: LIDOCAINE
     Indication: Cancer pain
     Dosage: 2MG/KG LOADING DOSE
     Route: 041
  40. LIDOCAINE [Suspect]
     Active Substance: LIDOCAINE
     Dosage: 1MG/KG MAINTENANCE DOSE
     Route: 041
  41. MORPHINE [Suspect]
     Active Substance: MORPHINE
     Indication: Cancer pain
     Dosage: 288 MILLIGRAM DAILY; PCA ON DAY 10, 11 AND 12
     Route: 042
  42. MORPHINE [Suspect]
     Active Substance: MORPHINE
     Dosage: 720 MILLIGRAM DAILY; DEMAND DOSE ON DAY 10, 11 AND 12
     Route: 042
  43. MORPHINE [Suspect]
     Active Substance: MORPHINE
     Dosage: 1440 MILLIGRAM DAILY; PCA ON DAY 16 AND 17 (LOCK-OUT DOSE)
     Route: 042
  44. MORPHINE [Suspect]
     Active Substance: MORPHINE
     Dosage: 240 MILLIGRAM DAILY; ON DAY 18
     Route: 041
  45. MORPHINE [Suspect]
     Active Substance: MORPHINE
     Dosage: 240 MILLIGRAM DAILY; PRN DOSE ON DAY 18
     Route: 042
  46. MORPHINE [Suspect]
     Active Substance: MORPHINE
     Dosage: 360 MILLIGRAM DAILY; ON DAY 19
     Route: 041
  47. MORPHINE [Suspect]
     Active Substance: MORPHINE
     Dosage: 480 MILLIGRAM DAILY; PRN DOSE ON DAY 19
     Route: 042
  48. GABAPENTIN [Concomitant]
     Active Substance: GABAPENTIN
     Indication: Cancer pain
     Route: 065

REACTIONS (1)
  - Drug ineffective [Unknown]
